FAERS Safety Report 5636060-X (Version None)
Quarter: 2008Q1

REPORT INFORMATION
  Report Type: 
  Country: None (occurrence: None)
  Receive Date: 20080220
  Receipt Date: 20080220
  Transmission Date: 20080703
  Serious: Yes (Life-Threatening)
  Sender: FDA-Public Use
  Company Number: None

PATIENT
  Age: 41 Year
  Sex: Female

DRUGS (1)
  1. FONDAPARINUX       7.5 MG [Suspect]
     Indication: THROMBOSIS PROPHYLAXIS
     Dosage: 7.5 MG DAILY SQ
     Route: 058

REACTIONS (5)
  - DRUG EXPOSURE DURING PREGNANCY [None]
  - EMBOLISM [None]
  - INTRA-UTERINE DEATH [None]
  - POOR PERIPHERAL CIRCULATION [None]
  - THROMBOSIS [None]
